FAERS Safety Report 10045950 (Version 2)
Quarter: 2014Q2

REPORT INFORMATION
  Report Type: Spontaneous
  Country: US (occurrence: US)
  Receive Date: 20140330
  Receipt Date: 20140414
  Transmission Date: 20141212
  Serious: No
  Sender: FDA-Public Use
  Company Number: US-009507513-1403USA008810

PATIENT
  Sex: Male

DRUGS (7)
  1. REBETOL [Suspect]
     Dosage: 2 DF, BID
     Route: 048
     Dates: start: 20021010, end: 20030903
  2. PEGINTRON [Suspect]
     Indication: HEPATITIS C
     Dosage: CAME IN A BOX WITH 2 VIALS AND 2 SYRINGES
     Dates: start: 20021010, end: 20030903
  3. LEXAPRO [Concomitant]
  4. ZOLOFT [Concomitant]
  5. SEROQUEL [Concomitant]
  6. SONATA [Concomitant]
  7. TRAZODONE HYDROCHLORIDE [Concomitant]

REACTIONS (8)
  - Bone pain [Not Recovered/Not Resolved]
  - Neuropsychiatric syndrome [Not Recovered/Not Resolved]
  - Feeling abnormal [Not Recovered/Not Resolved]
  - Depression [Not Recovered/Not Resolved]
  - Attention deficit/hyperactivity disorder [Not Recovered/Not Resolved]
  - Decreased appetite [Not Recovered/Not Resolved]
  - Adverse event [Not Recovered/Not Resolved]
  - Fatigue [Not Recovered/Not Resolved]
